FAERS Safety Report 14034227 (Version 1)
Quarter: 2017Q4

REPORT INFORMATION
  Report Type: Spontaneous
  Country: US (occurrence: US)
  Receive Date: 20171003
  Receipt Date: 20171003
  Transmission Date: 20180321
  Serious: No
  Sender: FDA-Public Use
  Company Number: US-TEVA-785839ACC

PATIENT
  Sex: Female

DRUGS (1)
  1. CLONAZEPAM. [Suspect]
     Active Substance: CLONAZEPAM
     Indication: ANXIETY
     Dosage: ONE TABLET IN THE MORNING AND ONE IN THE EVENING

REACTIONS (7)
  - Rash pustular [Unknown]
  - Drug effect decreased [Unknown]
  - Facial pain [Unknown]
  - Intentional product use issue [Unknown]
  - Panic attack [Unknown]
  - Dry skin [Unknown]
  - Headache [Unknown]

NARRATIVE: CASE EVENT DATE: 2017
